FAERS Safety Report 5939886-8 (Version None)
Quarter: 2008Q4

REPORT INFORMATION
  Report Type: 
  Country: None (occurrence: None)
  Receive Date: 20081030
  Receipt Date: 20081030
  Transmission Date: 20090506
  Serious: Yes (Other)
  Sender: FDA-Public Use
  Company Number: None

PATIENT
  Sex: Female
  Weight: 68.9467 kg

DRUGS (1)
  1. DOXIL [Suspect]
     Indication: RETROPERITONEAL NEOPLASM METASTATIC
     Dosage: 36MG Q2W IV
     Route: 042
     Dates: start: 20080711

REACTIONS (6)
  - BLISTER [None]
  - BURNING SENSATION [None]
  - PAIN [None]
  - PALMAR-PLANTAR ERYTHRODYSAESTHESIA SYNDROME [None]
  - RASH [None]
  - SKIN LACERATION [None]
